FAERS Safety Report 12300922 (Version 8)
Quarter: 2017Q3

REPORT INFORMATION
  Report Type: Report from Study
  Country: US (occurrence: US)
  Receive Date: 20160425
  Receipt Date: 20170809
  Transmission Date: 20171127
  Serious: Yes (Hospitalization, Disabling, Other)
  Sender: FDA-Public Use
  Company Number: US-SA-2015SA199854

PATIENT
  Age: 60 Year
  Sex: Female

DRUGS (2)
  1. LEMTRADA [Suspect]
     Active Substance: ALEMTUZUMAB
     Indication: MULTIPLE SCLEROSIS
     Route: 041
     Dates: start: 20151109, end: 20151113
  2. HYDROXYZINE [Suspect]
     Active Substance: HYDROXYZINE HYDROCHLORIDE
     Indication: PREMEDICATION
     Route: 065
     Dates: start: 20161113

REACTIONS (38)
  - Pneumonia [Recovering/Resolving]
  - Blister [Recovered/Resolved]
  - Dry mouth [Recovering/Resolving]
  - Influenza [Not Recovered/Not Resolved]
  - Pyrexia [Recovered/Resolved]
  - Vitreous haemorrhage [Recovering/Resolving]
  - Laboratory test abnormal [Not Recovered/Not Resolved]
  - Ill-defined disorder [Not Recovered/Not Resolved]
  - Dizziness [Recovered/Resolved]
  - Herpes zoster [Not Recovered/Not Resolved]
  - Rash [Recovered/Resolved]
  - Therapeutic response unexpected [Unknown]
  - Feeling abnormal [Not Recovered/Not Resolved]
  - Nasal dryness [Recovering/Resolving]
  - Pruritus [Recovered/Resolved]
  - Paranasal sinus discomfort [Not Recovered/Not Resolved]
  - Somnolence [Not Recovered/Not Resolved]
  - Bronchitis [Not Recovered/Not Resolved]
  - Eye swelling [Recovered/Resolved]
  - Asthenia [Recovering/Resolving]
  - Cough [Recovering/Resolving]
  - Tremor [Recovered/Resolved]
  - Arthralgia [Recovered/Resolved]
  - Dysgeusia [Recovered/Resolved]
  - Headache [Recovered/Resolved]
  - Multiple sclerosis relapse [Unknown]
  - Asthenia [Recovering/Resolving]
  - Weight decreased [Recovered/Resolved]
  - Fatigue [Recovering/Resolving]
  - Coordination abnormal [Recovered/Resolved]
  - Dental care [Recovered/Resolved]
  - Memory impairment [Recovering/Resolving]
  - Disability [Unknown]
  - Decreased appetite [Recovered/Resolved]
  - Feeling abnormal [Recovered/Resolved]
  - Cough [Recovered/Resolved]
  - Nasopharyngitis [Not Recovered/Not Resolved]
  - Sinus congestion [Recovering/Resolving]

NARRATIVE: CASE EVENT DATE: 2015
